FAERS Safety Report 15819856 (Version 4)
Quarter: 2020Q2

REPORT INFORMATION
  Report Type: Report from Study
  Country: US (occurrence: US)
  Receive Date: 20190114
  Receipt Date: 20200518
  Transmission Date: 20200713
  Serious: Yes (Other)
  Sender: FDA-Public Use
  Company Number: US-ROCHE-2240079

PATIENT

DRUGS (3)
  1. PACLITAXEL. [Suspect]
     Active Substance: PACLITAXEL
     Indication: BREAST CANCER METASTATIC
     Dosage: ON DAYS 1, 8 AND 15 OF EACH 28-DAY CYCLE (STARTING DOSE 80 MG/M2, IV INFUSION OVER 60 MIN).
     Route: 065
  2. TRASTUZUMAB. [Suspect]
     Active Substance: TRASTUZUMAB
     Indication: BREAST CANCER METASTATIC
     Dosage: INFUSED OVER 90 MIN.
     Route: 042
  3. TRASTUZUMAB. [Suspect]
     Active Substance: TRASTUZUMAB
     Dosage: INFUSED OVER 30-90 MIN DEPENDING ON TOLERABILITY ON DAY 1, 8, 15, 22 OF EACH WHEN GIVEN IN COMBINATI
     Route: 042

REACTIONS (8)
  - Pneumonia [Unknown]
  - Neutropenia [Unknown]
  - Infusion related reaction [Unknown]
  - Cardiac failure [Unknown]
  - Cardiac failure congestive [Unknown]
  - Pulmonary embolism [Unknown]
  - Cardiac failure acute [Unknown]
  - Ejection fraction decreased [Unknown]
